FAERS Safety Report 6192518-9 (Version None)
Quarter: 2009Q2

REPORT INFORMATION
  Report Type: 
  Country: None (occurrence: None)
  Receive Date: 20090518
  Receipt Date: 20090508
  Transmission Date: 20091009
  Serious: Yes (Other)
  Sender: FDA-Public Use
  Company Number: PHEH2006US15105

PATIENT
  Sex: Male
  Weight: 96.145 kg

DRUGS (19)
  1. ZOMETA [Suspect]
     Indication: PROSTATE CANCER
     Dosage: 4 MG, QMO
     Dates: start: 20041004
  2. ZOMETA [Suspect]
     Indication: METASTASES TO BONE
  3. VIVELLE [Concomitant]
     Route: 062
  4. TAXOTERE [Concomitant]
     Indication: PROSTATE CANCER
     Dosage: 30 MG/M2, WEEKLY FOR THREE TO FOUR WEEKS
  5. KETOCONAZOLE [Concomitant]
     Indication: PROSTATE CANCER
  6. PAXIL [Concomitant]
     Dosage: 60 MG, QD
  7. VIAGRA [Concomitant]
     Dosage: UNK, AS NEEDED
  8. HYDROMORPHONE HCL [Concomitant]
     Dosage: UNK, AS NEEDED
  9. ZANTAC [Concomitant]
     Dosage: 150 MG, QD
     Route: 048
  10. PREDNISONE [Concomitant]
     Dosage: 5 MG, BID
  11. MEGACE [Concomitant]
     Dosage: 40 CC, QD
     Route: 048
  12. MORPHINE SULFATE [Concomitant]
  13. ZYPREXA [Concomitant]
     Dosage: 2.5 MG, QD
  14. EFFEXOR [Concomitant]
     Dosage: 1 DF, QD
  15. IBUPROFEN [Concomitant]
     Dosage: 1800 MG, QD
  16. LOVENOX [Concomitant]
     Dosage: 60 MG, QD
  17. LUPRON [Concomitant]
  18. DULCOLAX [Concomitant]
  19. COLACE [Concomitant]

REACTIONS (27)
  - ANXIETY [None]
  - ARTHRALGIA [None]
  - BLOOD OESTROGEN INCREASED [None]
  - BONE DEBRIDEMENT [None]
  - BONE DISORDER [None]
  - DECREASED INTEREST [None]
  - DEPRESSION [None]
  - EMOTIONAL DISTRESS [None]
  - GENERAL PHYSICAL HEALTH DETERIORATION [None]
  - GINGIVAL DISORDER [None]
  - HALLUCINATION, VISUAL [None]
  - IMPAIRED HEALING [None]
  - JAW DISORDER [None]
  - METASTASES TO BONE [None]
  - MYALGIA [None]
  - ORAL PAIN [None]
  - OSTEOARTHRITIS [None]
  - OSTEONECROSIS [None]
  - PAIN [None]
  - PAIN IN JAW [None]
  - PROSTATIC SPECIFIC ANTIGEN INCREASED [None]
  - SOMNOLENCE [None]
  - TENDERNESS [None]
  - TOOTH DISORDER [None]
  - TOOTH EXTRACTION [None]
  - TOOTH INFECTION [None]
  - TOOTHACHE [None]
